FAERS Safety Report 22231478 (Version 1)
Quarter: 2023Q2

REPORT INFORMATION
  Report Type: Spontaneous
  Country: FR (occurrence: FR)
  Receive Date: 20230420
  Receipt Date: 20230420
  Transmission Date: 20230721
  Serious: Yes (Death, Other)
  Sender: FDA-Public Use
  Company Number: FR-AMGEN-FRASP2023063783

PATIENT

DRUGS (2)
  1. BEVACIZUMAB [Suspect]
     Active Substance: BEVACIZUMAB
     Indication: Inflammatory carcinoma of the breast
     Dosage: UNK
     Route: 065
  2. DOCETAXEL [Concomitant]
     Active Substance: DOCETAXEL
     Indication: Inflammatory carcinoma of the breast
     Dosage: UNK
     Route: 065

REACTIONS (6)
  - Death [Fatal]
  - Inflammatory carcinoma of the breast [Unknown]
  - Treatment failure [Unknown]
  - Dermatitis [Unknown]
  - Toxicity to various agents [Unknown]
  - Off label use [Unknown]
